FAERS Safety Report 21889491 (Version 1)
Quarter: 2023Q1

REPORT INFORMATION
  Report Type: Spontaneous
  Country: IN (occurrence: IN)
  Receive Date: 20230120
  Receipt Date: 20230120
  Transmission Date: 20230417
  Serious: Yes (Other)
  Sender: FDA-Public Use
  Company Number: IN-CIPLA LTD.-2023IN00246

PATIENT
  Sex: Male

DRUGS (1)
  1. EFAVIRENZ\EMTRICITABINE\TENOFOVIR DISOPROXIL FUMARATE [Suspect]
     Active Substance: EFAVIRENZ\EMTRICITABINE\TENOFOVIR DISOPROXIL FUMARATE
     Indication: Prophylaxis against HIV infection
     Dosage: 1 DOSAGE FORM, QD (ONE TABLET ORALLY IN THE AFTERNOON)
     Route: 048
     Dates: start: 20230108

REACTIONS (6)
  - Syncope [Recovered/Resolved]
  - Nausea [Recovering/Resolving]
  - Dizziness [Recovering/Resolving]
  - Product use in unapproved indication [Unknown]
  - Hangover [Unknown]
  - Off label use [Unknown]

NARRATIVE: CASE EVENT DATE: 20230108
